FAERS Safety Report 13272340 (Version 1)
Quarter: 2017Q1

REPORT INFORMATION
  Report Type: Report from Study
  Country: BR (occurrence: BR)
  Receive Date: 20170227
  Receipt Date: 20170227
  Transmission Date: 20170428
  Serious: Yes (Life-Threatening)
  Sender: FDA-Public Use
  Company Number: PHHY2017BR029196

PATIENT
  Sex: Female

DRUGS (3)
  1. DIOVAN [Suspect]
     Active Substance: VALSARTAN
     Indication: HYPERTENSION
     Dosage: 320 MG, QD
     Route: 048
  2. LIPITOR [Concomitant]
     Active Substance: ATORVASTATIN CALCIUM
     Indication: PRODUCT USED FOR UNKNOWN INDICATION
     Dosage: UNK
     Route: 065
  3. ASPIRIN. [Concomitant]
     Active Substance: ASPIRIN
     Indication: PRODUCT USED FOR UNKNOWN INDICATION
     Dosage: UNK
     Route: 065

REACTIONS (15)
  - Venous occlusion [Unknown]
  - Insomnia [Unknown]
  - Visual impairment [Unknown]
  - Blood pressure increased [Recovering/Resolving]
  - Eating disorder [Unknown]
  - Hypermetropia [Unknown]
  - Memory impairment [Not Recovered/Not Resolved]
  - Mood altered [Unknown]
  - Back pain [Unknown]
  - Stress [Unknown]
  - Agitation [Unknown]
  - Blood pressure decreased [Unknown]
  - Emotional disorder [Unknown]
  - Somnolence [Unknown]
  - Fear [Unknown]
